FAERS Safety Report 18781469 (Version 1)
Quarter: 2021Q1

REPORT INFORMATION
  Report Type: Spontaneous
  Country: CA (occurrence: CA)
  Receive Date: 20210125
  Receipt Date: 20210125
  Transmission Date: 20210419
  Serious: Yes (Other)
  Sender: FDA-Public Use
  Company Number: CA-ORION CORPORATION ORION PHARMA-21_00012752

PATIENT
  Age: 84 Year
  Sex: Male
  Weight: 73 kg

DRUGS (2)
  1. XELJANZ [Concomitant]
     Active Substance: TOFACITINIB CITRATE
     Route: 065
  2. METHOTREXATE (TRADE NAME UNKNOWN) [Suspect]
     Active Substance: METHOTREXATE
     Indication: RHEUMATOID ARTHRITIS
     Dosage: (7.5?10MG)
     Route: 065
     Dates: start: 201505, end: 201605

REACTIONS (3)
  - Nausea [Unknown]
  - Drug intolerance [Unknown]
  - Pulmonary fibrosis [Unknown]
